FAERS Safety Report 8546219 (Version 3)
Quarter: 2013Q3

REPORT INFORMATION
  Report Type: Spontaneous
  Country: US (occurrence: US)
  Receive Date: 20120504
  Receipt Date: 20130802
  Transmission Date: 20140515
  Serious: Yes (Hospitalization)
  Sender: FDA-Public Use
  Company Number: US-BAYER-2012-042590

PATIENT
  Age: 43 Year
  Sex: Female
  Weight: 66.67 kg

DRUGS (6)
  1. YAZ [Suspect]
     Indication: MIGRAINE
     Dosage: UNK
     Dates: start: 200609, end: 20061107
  2. YAZ [Suspect]
     Indication: MENORRHAGIA
  3. MULTIVITAMIN [Concomitant]
  4. EXTRA STRENGTH TYLENOL [Concomitant]
  5. PERCOCET [Concomitant]
  6. SYNTHROID [Concomitant]
     Dosage: 25 ?G, UNK
     Dates: start: 20070823

REACTIONS (14)
  - Pulmonary embolism [None]
  - Deep vein thrombosis [None]
  - Haematuria [None]
  - Muscle haemorrhage [None]
  - Injury [None]
  - Pain [None]
  - Dyspnoea [None]
  - Pain in extremity [None]
  - Local swelling [None]
  - Contusion [None]
  - Tenderness [None]
  - Chest pain [None]
  - Off label use [None]
  - Flank pain [None]
